FAERS Safety Report 21962621 (Version 1)
Quarter: 2023Q1

REPORT INFORMATION
  Report Type: Spontaneous
  Country: CN (occurrence: None)
  Receive Date: 20230207
  Receipt Date: 20230207
  Transmission Date: 20230418
  Serious: Yes (Other)
  Sender: FDA-Public Use
  Company Number: CN-ROCHE-3274801

PATIENT
  Age: 56 Year
  Sex: Male
  Weight: 67 kg

DRUGS (11)
  1. AVASTIN [Suspect]
     Active Substance: BEVACIZUMAB
     Indication: Hepatocellular carcinoma
     Dosage: A+T REGIMEN
     Route: 065
     Dates: start: 20220517
  2. AVASTIN [Suspect]
     Active Substance: BEVACIZUMAB
     Dosage: A+T REGIMEN
     Route: 065
     Dates: start: 20220921
  3. AVASTIN [Suspect]
     Active Substance: BEVACIZUMAB
     Dosage: A+T REGIMEN
     Route: 065
     Dates: start: 20220609
  4. AVASTIN [Suspect]
     Active Substance: BEVACIZUMAB
     Dosage: A+T REGIMEN
     Route: 065
     Dates: start: 20220701
  5. AVASTIN [Suspect]
     Active Substance: BEVACIZUMAB
     Dosage: A+T REGIMEN
     Route: 065
     Dates: start: 20220729
  6. TECENTRIQ [Suspect]
     Active Substance: ATEZOLIZUMAB
     Indication: Hepatocellular carcinoma
     Dosage: A+T REGIMEN
     Route: 041
     Dates: start: 20220517
  7. TECENTRIQ [Suspect]
     Active Substance: ATEZOLIZUMAB
     Dosage: A+T REGIMEN
     Route: 041
     Dates: start: 20220921
  8. TECENTRIQ [Suspect]
     Active Substance: ATEZOLIZUMAB
     Dosage: A+T REGIMEN
     Route: 041
     Dates: start: 20220609
  9. TECENTRIQ [Suspect]
     Active Substance: ATEZOLIZUMAB
     Dosage: A+T REGIMEN
     Route: 041
     Dates: start: 20220701
  10. TECENTRIQ [Suspect]
     Active Substance: ATEZOLIZUMAB
     Dosage: A+T REGIMEN
     Route: 041
     Dates: start: 20220729
  11. PIRARUBICIN [Concomitant]
     Active Substance: PIRARUBICIN
     Indication: Hepatocellular carcinoma
     Route: 065
     Dates: start: 20220705

REACTIONS (5)
  - Hepatic necrosis [Unknown]
  - Upper gastrointestinal haemorrhage [Unknown]
  - Hepatic encephalopathy [Unknown]
  - Drug eruption [Recovering/Resolving]
  - Acute hepatic failure [Recovering/Resolving]
